FAERS Safety Report 4682586-5 (Version None)
Quarter: 2005Q2

REPORT INFORMATION
  Report Type: 
  Country: None (occurrence: None)
  Receive Date: 20050531
  Receipt Date: 20050404
  Transmission Date: 20051028
  Serious: No
  Sender: FDA-Public Use
  Company Number: 2005BI006969

PATIENT
  Age: 56 Year
  Sex: Male
  Weight: 117.9352 kg

DRUGS (1)
  1. AMEVIVE [Suspect]
     Indication: PSORIASIS
     Dosage: 15 MG;QW;IM
     Route: 030
     Dates: start: 20050312, end: 20050312

REACTIONS (4)
  - DYSURIA [None]
  - FATIGUE [None]
  - FEELING COLD [None]
  - HEADACHE [None]
